FAERS Safety Report 25907277 (Version 1)
Quarter: 2025Q4

REPORT INFORMATION
  Report Type: Spontaneous
  Country: CA (occurrence: CA)
  Receive Date: 20251010
  Receipt Date: 20251010
  Transmission Date: 20260117
  Serious: Yes (Other)
  Sender: BAYER HEALTHCARE PHARMACEUTICALS INC.
  Company Number: CA-BAYER-2025A132896

PATIENT
  Age: 43 Year
  Sex: Female

DRUGS (2)
  1. MIRENA [Suspect]
     Active Substance: LEVONORGESTREL
     Indication: Contraception
     Dosage: 20?G/DAY
     Route: 015
  2. ZOLMITRIPTAN [Concomitant]
     Active Substance: ZOLMITRIPTAN
     Indication: Migraine

REACTIONS (8)
  - Major depression [Recovering/Resolving]
  - Suicidal ideation [Recovering/Resolving]
  - Loss of personal independence in daily activities [Recovering/Resolving]
  - Vaginal haemorrhage [Recovering/Resolving]
  - Breast tenderness [Recovering/Resolving]
  - Condition aggravated [Recovering/Resolving]
  - Depression [Recovering/Resolving]
  - Intermenstrual bleeding [None]
